FAERS Safety Report 25347719 (Version 2)
Quarter: 2025Q2

REPORT INFORMATION
  Report Type: Report from Study
  Country: CA (occurrence: CA)
  Receive Date: 20250522
  Receipt Date: 20250617
  Transmission Date: 20250717
  Serious: Yes (Hospitalization, Other)
  Sender: TAKEDA
  Company Number: CA-TAKEDA-2025TUS047824

PATIENT
  Sex: Male

DRUGS (12)
  1. VEDOLIZUMAB [Suspect]
     Active Substance: VEDOLIZUMAB
     Indication: Colitis ulcerative
  2. VEDOLIZUMAB [Suspect]
     Active Substance: VEDOLIZUMAB
     Dosage: 300 MILLIGRAM, Q4WEEKS
     Dates: start: 20160817
  3. HYDROCHLOROTHIAZIDE\OLMESARTAN MEDOXOMIL [Concomitant]
     Active Substance: HYDROCHLOROTHIAZIDE\OLMESARTAN MEDOXOMIL
  4. PULMICORT TURBUHALER [Concomitant]
     Active Substance: BUDESONIDE
  5. Reactine [Concomitant]
  6. VENTOLIN [Concomitant]
     Active Substance: ALBUTEROL SULFATE
  7. SLOW K [Concomitant]
     Active Substance: POTASSIUM CHLORIDE
  8. ADALAT [Concomitant]
     Active Substance: NIFEDIPINE
  9. B12 [Concomitant]
  10. MAGNESIUM [Concomitant]
     Active Substance: MAGNESIUM
  11. TAMSULOSIN [Concomitant]
     Active Substance: TAMSULOSIN
  12. TORADOL [Concomitant]
     Active Substance: KETOROLAC TROMETHAMINE

REACTIONS (2)
  - Nephrolithiasis [Recovering/Resolving]
  - Toothache [Recovered/Resolved]
